FAERS Safety Report 4459238-X (Version None)
Quarter: 2004Q3

REPORT INFORMATION
  Report Type: 
  Country: None (occurrence: None)
  Receive Date: 20040922
  Receipt Date: 20040922
  Transmission Date: 20050211
  Serious: Yes (Death)
  Sender: FDA-Public Use
  Company Number: None

PATIENT
  Age: 70 Year
  Sex: Male
  Weight: 79.5 kg

DRUGS (6)
  1. CISPLATIN [Suspect]
     Indication: NON-SMALL CELL LUNG CANCER
     Dosage: 98 MG D 1,8,29,36
     Dates: start: 20040728
  2. CISPLATIN [Suspect]
     Indication: NON-SMALL CELL LUNG CANCER
     Dosage: 98 MG D 1,8,29,36
     Dates: start: 20040804
  3. CISPLATIN [Suspect]
     Indication: NON-SMALL CELL LUNG CANCER
     Dosage: 98 MG D 1,8,29,36
     Dates: start: 20040825
  4. CISPLATIN [Suspect]
     Indication: NON-SMALL CELL LUNG CANCER
     Dosage: 98 MG D 1,8,29,36
     Dates: start: 20040901
  5. ETOPOSIDE [Suspect]
     Dosage: DAY 1-5 AND 29-33
     Dates: start: 20040728, end: 20040801
  6. ETOPOSIDE [Suspect]
     Dosage: DAY 1-5 AND 29-33
     Dates: start: 20040825, end: 20040829

REACTIONS (8)
  - ANAEMIA [None]
  - CATHETER RELATED INFECTION [None]
  - COMA [None]
  - DYSPHAGIA [None]
  - NEUTROPENIA [None]
  - ODYNOPHAGIA [None]
  - RESTLESSNESS [None]
  - STAPHYLOCOCCAL INFECTION [None]
